FAERS Safety Report 23679261 (Version 1)
Quarter: 2024Q1

REPORT INFORMATION
  Report Type: Spontaneous
  Country: CN (occurrence: CN)
  Receive Date: 20240327
  Receipt Date: 20240327
  Transmission Date: 20240410
  Serious: Yes (Other)
  Sender: FDA-Public Use
  Company Number: CN-JNJFOC-20240357603

PATIENT

DRUGS (1)
  1. REMICADE [Suspect]
     Active Substance: INFLIXIMAB
     Indication: Crohn^s disease
     Route: 041

REACTIONS (41)
  - Pancreatitis acute [Unknown]
  - Epilepsy [Unknown]
  - Extragonadal primary seminoma (pure) [Unknown]
  - Pituitary tumour [Unknown]
  - Precancerous condition [Unknown]
  - Liver injury [Unknown]
  - Tuberculosis liver [Unknown]
  - Extrapulmonary tuberculosis [Unknown]
  - Adenocarcinoma [Unknown]
  - Cryptococcosis [Unknown]
  - Tuberculosis [Unknown]
  - Clostridium difficile infection [Unknown]
  - Atypical mycobacterial infection [Unknown]
  - Pneumonia bacterial [Unknown]
  - Thyroid cancer [Unknown]
  - Lung neoplasm malignant [Unknown]
  - Breast cancer [Unknown]
  - Hepatic cancer [Unknown]
  - Colon cancer [Unknown]
  - Chronic myeloid leukaemia [Unknown]
  - Clear cell renal cell carcinoma [Unknown]
  - Hepatitis B [Unknown]
  - Infusion related reaction [Unknown]
  - Infusion related reaction [Unknown]
  - Varicella zoster virus infection [Unknown]
  - Psoriasis [Unknown]
  - Hepatic function abnormal [Unknown]
  - Latent tuberculosis [Unknown]
  - Arthralgia [Unknown]
  - Hyperuricaemia [Unknown]
  - Nervous system injury [Unknown]
  - Alopecia [Unknown]
  - Visual impairment [Unknown]
  - Respiratory tract infection [Unknown]
  - Cytomegalovirus infection [Unknown]
  - Exposure during pregnancy [Unknown]
  - Haematology test abnormal [Unknown]
  - Mucosal infection [Unknown]
  - Fungal skin infection [Unknown]
  - Cutaneous tuberculosis [Unknown]
  - Asthenia [Unknown]
